FAERS Safety Report 7559688-9 (Version None)
Quarter: 2011Q2

REPORT INFORMATION
  Report Type: 
  Country: None (occurrence: None)
  Receive Date: 20110621
  Receipt Date: 20110609
  Transmission Date: 20111010
  Serious: Yes (Other)
  Sender: FDA-Public Use
  Company Number: US-ELI_LILLY_AND_COMPANY-US201106002203

PATIENT
  Age: 22 Year
  Sex: Female

DRUGS (5)
  1. CYMBALTA [Suspect]
     Dosage: UNK, UNKNOWN
  2. XANAX                                   /USA/ [Concomitant]
  3. ZANAFLEX [Concomitant]
     Indication: BACK PAIN
  4. DEPAKOTE [Concomitant]
  5. KLONOPIN [Concomitant]

REACTIONS (5)
  - SELF INJURIOUS BEHAVIOUR [None]
  - AGGRESSION [None]
  - ANGER [None]
  - IRRITABILITY [None]
  - SUICIDAL IDEATION [None]
